FAERS Safety Report 7761197-9 (Version None)
Quarter: 2011Q3

REPORT INFORMATION
  Report Type: 
  Country: None (occurrence: None)
  Receive Date: 20110920
  Receipt Date: 20110908
  Transmission Date: 20111222
  Serious: Yes (Other)
  Sender: FDA-Public Use
  Company Number: CA-ELI_LILLY_AND_COMPANY-CA201109002331

PATIENT
  Sex: Male

DRUGS (26)
  1. CELEXA [Concomitant]
  2. ANAFRANIL [Concomitant]
  3. ATIVAN [Concomitant]
  4. SEROQUEL [Concomitant]
  5. ZYPREXA [Suspect]
     Dosage: 90 MG, QD
  6. TEGRETOL [Concomitant]
  7. ZOLOFT [Concomitant]
  8. NORTRIPTYLINE HCL [Concomitant]
  9. TRAZODONE HCL [Concomitant]
  10. CLONAZEPAM [Concomitant]
  11. DEXEDRINE [Concomitant]
  12. IMIPRAMINE [Concomitant]
  13. OXAZEPAM [Concomitant]
  14. VALPROATE SODIUM [Concomitant]
  15. LITHIUM CARBONATE [Concomitant]
  16. BUSPAR [Concomitant]
  17. XANAX [Concomitant]
  18. ZYPREXA [Suspect]
     Dosage: 30 MG, QD
  19. RISPERIDONE [Concomitant]
  20. TOPAMAX [Concomitant]
  21. EMTEC-30 [Concomitant]
  22. METHYLPHENIDATE [Concomitant]
  23. ZYPREXA [Suspect]
     Indication: SCHIZOPHRENIA, PARANOID TYPE
     Dosage: 10 MG, EACH EVENING
     Dates: start: 19961220
  24. ZYPREXA [Suspect]
     Dosage: 40 MG, QD
  25. ZYPREXA [Suspect]
     Dosage: 50 MG, QD
  26. EFFEXOR [Concomitant]

REACTIONS (11)
  - SLEEP APNOEA SYNDROME [None]
  - WEIGHT INCREASED [None]
  - PALPITATIONS [None]
  - GAMMA-GLUTAMYLTRANSFERASE INCREASED [None]
  - BLOOD CHOLESTEROL INCREASED [None]
  - WHITE BLOOD CELL COUNT INCREASED [None]
  - OVERDOSE [None]
  - DIABETES MELLITUS [None]
  - MYOCARDIAL INFARCTION [None]
  - CHEST PAIN [None]
  - ASPARTATE AMINOTRANSFERASE INCREASED [None]
